FAERS Safety Report 6399700-6 (Version None)
Quarter: 2009Q4

REPORT INFORMATION
  Report Type: 
  Country: None (occurrence: None)
  Receive Date: 20091014
  Receipt Date: 20091007
  Transmission Date: 20100525
  Serious: Yes (Other)
  Sender: FDA-Public Use
  Company Number: GB-ROCHE-661088

PATIENT
  Age: 25 Year

DRUGS (3)
  1. TAMIFLU [Suspect]
     Indication: DRUG USE FOR UNKNOWN INDICATION
     Route: 065
     Dates: start: 20091005
  2. TRAMADOL HYDROCHLORIDE [Concomitant]
  3. GABAPENTIN [Concomitant]

REACTIONS (1)
  - HALLUCINATION, VISUAL [None]
